FAERS Safety Report 6502712-2 (Version None)
Quarter: 2009Q4

REPORT INFORMATION
  Report Type: 
  Country: None (occurrence: None)
  Receive Date: 20091127
  Receipt Date: 20090819
  Transmission Date: 20100525
  Serious: No
  Sender: FDA-Public Use
  Company Number: 001586

PATIENT
  Sex: Female

DRUGS (3)
  1. LACOSAMIDE [Suspect]
     Indication: CONVULSION
     Dosage: 300 MG QD, 100MG IN THE MORNING 200MG IN THE EVENING ORAL
     Route: 048
     Dates: start: 20090101
  2. KEPPRA [Suspect]
     Indication: CONVULSION
     Dosage: DOSE ORAL, 750MG IN MORNING 1500 MG AT BEDTIME ORAL
     Route: 048
     Dates: start: 20060101
  3. ZONEGRAN [Concomitant]

REACTIONS (2)
  - DIZZINESS [None]
  - PAIN [None]
